FAERS Safety Report 25591444 (Version 1)
Quarter: 2025Q3

REPORT INFORMATION
  Report Type: Spontaneous
  Country: US (occurrence: None)
  Receive Date: 20250722
  Receipt Date: 20250722
  Transmission Date: 20251020
  Serious: No
  Sender: FDA-CTU
  Company Number: None

PATIENT
  Age: 29 Year
  Sex: Female
  Weight: 97.65 kg

DRUGS (2)
  1. ZEPBOUND [Suspect]
     Active Substance: TIRZEPATIDE
     Indication: Weight decreased
     Route: 042
     Dates: start: 20250722, end: 20250722
  2. Tirosent [Concomitant]

REACTIONS (4)
  - Injection site urticaria [None]
  - Lymphadenitis [None]
  - Lymph node pain [None]
  - Nuchal rigidity [None]

NARRATIVE: CASE EVENT DATE: 20250722
